FAERS Safety Report 21598227 (Version 4)
Quarter: 2023Q1

REPORT INFORMATION
  Report Type: Spontaneous
  Country: US (occurrence: US)
  Receive Date: 20221115
  Receipt Date: 20230228
  Transmission Date: 20230417
  Serious: Yes (Other)
  Sender: FDA-Public Use
  Company Number: US-PFIZER INC-202201296523

PATIENT
  Age: 53 Year
  Sex: Female
  Weight: 58.967 kg

DRUGS (3)
  1. PAXLOVID [Suspect]
     Active Substance: NIRMATRELVIR\RITONAVIR
     Indication: COVID-19 treatment
     Dosage: 1 DF, 2X/DAY
     Route: 048
     Dates: start: 20221109, end: 20221113
  2. ADVIL PM [Concomitant]
     Active Substance: DIPHENHYDRAMINE CITRATE\IBUPROFEN
     Indication: Pyrexia
     Dosage: UNK, 2X/DAY
     Dates: start: 20221106, end: 20221111
  3. ADVIL PM [Concomitant]
     Active Substance: DIPHENHYDRAMINE CITRATE\IBUPROFEN
     Indication: Chills

REACTIONS (15)
  - Dyspnoea [Recovered/Resolved]
  - Dysgeusia [Recovered/Resolved]
  - Abdominal pain upper [Recovered/Resolved]
  - Nausea [Recovered/Resolved]
  - Asthenia [Recovered/Resolved]
  - Diarrhoea [Recovered/Resolved]
  - Dysaesthesia [Recovered/Resolved]
  - Peripheral coldness [Recovered/Resolved]
  - Rhinorrhoea [Recovered/Resolved]
  - Chest discomfort [Unknown]
  - Cough [Recovered/Resolved]
  - Dizziness [Recovering/Resolving]
  - Myalgia [Recovering/Resolving]
  - Therapeutic product effect incomplete [Unknown]
  - Intentional product use issue [Unknown]

NARRATIVE: CASE EVENT DATE: 20221109
